FAERS Safety Report 21280669 (Version 1)
Quarter: 2022Q3

REPORT INFORMATION
  Report Type: Other
  Country: US (occurrence: None)
  Receive Date: 20220901
  Receipt Date: 20220901
  Transmission Date: 20221026
  Serious: Yes (Other)
  Sender: FDA-Public Use
  Company Number: US-ROCHE-3168957

PATIENT
  Sex: Female
  Weight: 72.6 kg

DRUGS (4)
  1. OCREVUS [Suspect]
     Active Substance: OCRELIZUMAB
     Indication: Relapsing-remitting multiple sclerosis
     Route: 042
  2. VITAMIN D3 [Concomitant]
     Active Substance: CHOLECALCIFEROL
     Route: 048
  3. NEURONTIN [Concomitant]
     Active Substance: GABAPENTIN
     Route: 048
     Dates: start: 20211101, end: 20220430
  4. TRIVORA-28 [Concomitant]
     Dates: start: 20210305, end: 20220413

REACTIONS (7)
  - Fall [Unknown]
  - Gait disturbance [Unknown]
  - Urinary tract infection [Unknown]
  - Multiple sclerosis [Unknown]
  - Paranasal sinus mucosal hypertrophy [Unknown]
  - Osteoarthritis [Unknown]
  - Balance disorder [Unknown]
